FAERS Safety Report 18514100 (Version 1)
Quarter: 2020Q4

REPORT INFORMATION
  Report Type: Spontaneous
  Country: US (occurrence: US)
  Receive Date: 20201117
  Receipt Date: 20201117
  Transmission Date: 20210114
  Serious: No
  Sender: FDA-Public Use
  Company Number: US-NALPROPION PHARMACEUTICALS INC.-2019-008789

PATIENT
  Age: 63 Year
  Sex: Female
  Weight: 80.73 kg

DRUGS (4)
  1. CONTRAVE [Suspect]
     Active Substance: BUPROPION HYDROCHLORIDE\NALTREXONE HYDROCHLORIDE
     Indication: WEIGHT CONTROL
     Dosage: ONE TABLET DAILY
     Route: 048
     Dates: start: 20190928, end: 20191006
  2. ABILIFY [Concomitant]
     Active Substance: ARIPIPRAZOLE
     Indication: DEPRESSION
     Dosage: UNK
     Route: 048
     Dates: start: 20190913, end: 20191003
  3. METHAMIZOL [Concomitant]
     Active Substance: METAMIZOLE
     Indication: HYPERTHYROIDISM
     Dosage: UNK
     Route: 048
  4. ASMANEX [Concomitant]
     Active Substance: MOMETASONE FUROATE
     Indication: ASTHMA
     Dosage: UNK
     Route: 048

REACTIONS (8)
  - Food craving [Not Recovered/Not Resolved]
  - Drug titration error [Unknown]
  - Taste disorder [Recovered/Resolved]
  - Energy increased [Recovered/Resolved]
  - Headache [Recovered/Resolved]
  - Nausea [Recovered/Resolved]
  - Asthenia [Recovered/Resolved]
  - Insomnia [Recovered/Resolved]

NARRATIVE: CASE EVENT DATE: 2019
